FAERS Safety Report 9640409 (Version 1)
Quarter: 2013Q4

REPORT INFORMATION
  Report Type: Spontaneous
  Country: US (occurrence: None)
  Receive Date: 20131021
  Receipt Date: 20131021
  Transmission Date: 20140711
  Serious: Yes (Disabling, Other)
  Sender: FDA-Public Use
  Company Number: 1310-1314

PATIENT
  Age: 89 Year
  Sex: Female

DRUGS (10)
  1. EYLEA [Suspect]
     Indication: AGE-RELATED MACULAR DEGENERATION
     Dosage: 2 MG, 1 IN 2 M, INRAVITREAL
     Dates: start: 20120301
  2. PRAVASTATIN (PRAVASTATIN) [Concomitant]
  3. ISOSORBIDE (ISOSORBIDE) [Concomitant]
  4. POTASSIUM (POTASSIUM) [Concomitant]
  5. DIOVAN (VALSARTAN) [Concomitant]
  6. RANITDINE (RANITIDINE) [Concomitant]
  7. DETROL (TOLTERODINE L-TARTRATE) [Concomitant]
  8. ASPIRIN (ACETYLSALICYLIC ACID) [Concomitant]
  9. LASIX (FUROSEMIDE) [Concomitant]
  10. LABETALOL (LABETALOL) [Concomitant]

REACTIONS (2)
  - Uveitis [None]
  - Blindness [None]
